FAERS Safety Report 7013001-4 (Version None)
Quarter: 2010Q3

REPORT INFORMATION
  Report Type: 
  Country: None (occurrence: None)
  Receive Date: 20100924
  Receipt Date: 20100914
  Transmission Date: 20110219
  Serious: Yes (Other)
  Sender: FDA-Public Use
  Company Number: US-JNJFOC-20090907370

PATIENT
  Sex: Male
  Weight: 31 kg

DRUGS (2)
  1. CHILDREN'S TYLENOL PLUS MULTI-SYMPTOM COLD [Suspect]
     Indication: NASOPHARYNGITIS
     Dosage: 30ML 2-3 TIMES PER DAY ^SINCE LAST WEEK^
     Route: 048
  2. CHILDREN'S TYLENOL PLUS MULTI-SYMPTOM COLD [Suspect]
     Indication: COUGH
     Dosage: 30ML 2-3 TIMES PER DAY ^SINCE LAST WEEK^
     Route: 048

REACTIONS (5)
  - ACCIDENTAL OVERDOSE [None]
  - ASTHMA [None]
  - H1N1 INFLUENZA [None]
  - TRANSMISSION OF AN INFECTIOUS AGENT VIA A MEDICINAL PRODUCT [None]
  - VIRAL INFECTION [None]
